FAERS Safety Report 22118468 (Version 1)
Quarter: 2023Q1

REPORT INFORMATION
  Report Type: Spontaneous
  Country: CA (occurrence: CA)
  Receive Date: 20230321
  Receipt Date: 20230321
  Transmission Date: 20230417
  Serious: Yes (Hospitalization, Other)
  Sender: FDA-Public Use
  Company Number: CA-002147023-NVSC2023CA059766

PATIENT
  Age: 64 Year
  Sex: Female

DRUGS (2)
  1. TACROLIMUS [Suspect]
     Active Substance: TACROLIMUS
     Indication: Myositis
     Dosage: UNK
     Route: 065
  2. PREDNISONE [Concomitant]
     Active Substance: PREDNISONE
     Indication: Myositis
     Dosage: UNK (NOT SPECIFIED)
     Route: 065

REACTIONS (5)
  - Interstitial lung disease [Unknown]
  - Muscle spasms [Unknown]
  - Drug intolerance [Unknown]
  - Condition aggravated [Unknown]
  - Off label use [Unknown]
